FAERS Safety Report 6187875-3 (Version None)
Quarter: 2009Q2

REPORT INFORMATION
  Report Type: 
  Country: None (occurrence: None)
  Receive Date: 20090513
  Receipt Date: 20090430
  Transmission Date: 20091009
  Serious: Yes (Hospitalization)
  Sender: FDA-Public Use
  Company Number: US-JNJFOC-20081105072

PATIENT
  Sex: Female
  Weight: 34.7 kg

DRUGS (7)
  1. INFLIXIMAB [Suspect]
     Indication: INFLAMMATORY BOWEL DISEASE
     Route: 042
  2. REMICADE [Suspect]
     Indication: INFLAMMATORY BOWEL DISEASE
     Route: 042
  3. FOLIC ACID [Concomitant]
  4. ZOFRAN [Concomitant]
  5. PROBIOTICS [Concomitant]
  6. 5-ASA [Concomitant]
     Indication: INFLAMMATORY BOWEL DISEASE
     Route: 048
  7. ANTIBIOTICS [Concomitant]
     Indication: INFLAMMATORY BOWEL DISEASE

REACTIONS (2)
  - ANAL STENOSIS [None]
  - RETROPERITONEAL ABSCESS [None]
